FAERS Safety Report 15920566 (Version 2)
Quarter: 2019Q1

REPORT INFORMATION
  Report Type: Report from Study
  Country: CA (occurrence: CA)
  Receive Date: 20190205
  Receipt Date: 20190213
  Transmission Date: 20190417
  Serious: Yes (Other)
  Sender: FDA-Public Use
  Company Number: CA-PFIZER INC-2019053496

PATIENT
  Age: 50 Year
  Sex: Male

DRUGS (4)
  1. CHOLESTYRAMINE. [Concomitant]
     Active Substance: CHOLESTYRAMINE
     Dosage: UNK UNK, QD
  2. TECTA [Suspect]
     Active Substance: PANTOPRAZOLE MAGNESIUM
     Indication: HYPERCHLORHYDRIA
     Dosage: UNK
     Route: 065
  3. ENTYVIO [Suspect]
     Active Substance: VEDOLIZUMAB
     Indication: CROHN^S DISEASE
     Dosage: 300 MILLIGRAM
     Route: 042
     Dates: start: 20170815
  4. GABAPENTIN. [Concomitant]
     Active Substance: GABAPENTIN
     Dosage: 600 MILLIGRAM

REACTIONS (2)
  - Crohn^s disease [Unknown]
  - Hernia [Unknown]
